FAERS Safety Report 8934244 (Version 1)
Quarter: 2012Q4

REPORT INFORMATION
  Report Type: Report from Study
  Country: US (occurrence: US)
  Receive Date: 20121129
  Receipt Date: 20121129
  Transmission Date: 20130627
  Serious: Yes (Hospitalization)
  Sender: FDA-Public Use
  Company Number: US-009507513-1211USA010210

PATIENT
  Age: 60 Year
  Sex: Female
  Weight: 69.2 kg

DRUGS (13)
  1. TEMOZOLOMIDE [Suspect]
     Indication: GLIOBLASTOMA
     Dosage: day 1 to day 5
     Dates: start: 20100122, end: 20100204
  2. BEVACIZUMAB [Suspect]
     Indication: GLIOBLASTOMA
     Dosage: 592 mg every two weeks (1 in 2 weeks)
     Route: 042
     Dates: start: 20100122, end: 20100204
  3. IRINOTECAN HYDROCHLORIDE [Suspect]
     Indication: GLIOBLASTOMA
     Dosage: 133 mg every 2 weeks
     Route: 042
     Dates: start: 20100122, end: 20100204
  4. ASACOL [Concomitant]
     Dosage: 400 mg,3 bid
  5. FLONASE [Concomitant]
     Dosage: 1 in 3
  6. LORTAB [Concomitant]
     Dosage: 7.5 mg, qid
  7. ONDANSETRON [Concomitant]
     Dosage: 1 in 1
  8. PROAIR (ALBUTEROL SULFATE) [Concomitant]
     Dosage: 1-2 puffs every 2 hours as necessary
     Route: 055
  9. SYNTHROID [Concomitant]
     Dosage: 137 Microgram, qd
  10. TENORMIN [Concomitant]
     Dosage: UNK, qd
  11. FOLIC ACID [Concomitant]
     Dosage: UNK, qd
  12. HYDROCORTISONE [Concomitant]
     Dosage: 10 mg, tid
  13. CALCIUM (UNSPECIFIED) (+) VITAMIN D (UNSPECIFIED) [Concomitant]
     Dosage: UNK, qd

REACTIONS (5)
  - Infection [Unknown]
  - Pneumonia streptococcal [Unknown]
  - Pyrexia [Unknown]
  - Hypotension [Recovered/Resolved]
  - Pulmonary embolism [Unknown]
